FAERS Safety Report 14338271 (Version 1)
Quarter: 2017Q4

REPORT INFORMATION
  Report Type: Spontaneous
  Country: CA (occurrence: CA)
  Receive Date: 20171229
  Receipt Date: 20171229
  Transmission Date: 20180321
  Serious: Yes (Other)
  Sender: FDA-Public Use
  Company Number: CA-ROCHE-2047640

PATIENT
  Age: 33 Year
  Sex: Female

DRUGS (2)
  1. XOLAIR [Suspect]
     Active Substance: OMALIZUMAB
     Indication: CHRONIC SPONTANEOUS URTICARIA
     Dosage: 150 MG, ONCE IN 4WEEKS
     Route: 058
     Dates: start: 20151009
  2. XOLAIR [Suspect]
     Active Substance: OMALIZUMAB
     Dosage: 300 MG, ONCE EVERY 4 WEEKS
     Route: 058

REACTIONS (7)
  - Sinusitis [Unknown]
  - Pruritus [Unknown]
  - Urticaria [Unknown]
  - Anaemia postoperative [Unknown]
  - Post procedural haemorrhage [Unknown]
  - Influenza [Unknown]
  - Uterine leiomyoma [Unknown]

NARRATIVE: CASE EVENT DATE: 20171212
